FAERS Safety Report 17676206 (Version 1)
Quarter: 2020Q2

REPORT INFORMATION
  Report Type: Report from Study
  Country: NL (occurrence: NL)
  Receive Date: 20200416
  Receipt Date: 20200416
  Transmission Date: 20200714
  Serious: Yes (Other)
  Sender: FDA-Public Use
  Company Number: NL-TEVA-2020-NL-1223598

PATIENT
  Age: 77 Year
  Sex: Female

DRUGS (4)
  1. CALCICHEWD3 [Concomitant]
     Dosage: 500MG/IE, 1X/D
     Dates: start: 20170101
  2. METHOTREXATE. [Suspect]
     Active Substance: METHOTREXATE
     Indication: CROHN^S DISEASE
     Dosage: 2.1429 MILLIGRAM DAILY; 15MG, 1X/W
     Dates: start: 20190611, end: 20190808
  3. QUESTRAN [Concomitant]
     Active Substance: CHOLESTYRAMINE
     Dosage: 4G, SON
  4. FOLIUMZUUR [Concomitant]
     Active Substance: FOLIC ACID
     Dosage: .7143 MILLIGRAM DAILY; 5MG, 1X/W
     Dates: start: 20190228, end: 20190808

REACTIONS (2)
  - Decreased appetite [Recovered/Resolved]
  - Crohn^s disease [Recovered/Resolved]

NARRATIVE: CASE EVENT DATE: 20190808
